FAERS Safety Report 6749682 (Version 2)
Quarter: 2017Q1

REPORT INFORMATION
  Report Type: Spontaneous
  Country: IL (occurrence: IL)
  Receive Date: 20080905
  Receipt Date: 20170321
  Transmission Date: 20170429
  Serious: Yes (Hospitalization)
  Sender: FDA-Public Use
  Company Number: IL-PFIZER INC-2008071350

PATIENT
  Age: 12 Year
  Sex: Female

DRUGS (2)
  1. METHYLPHENIDATE. [Interacting]
     Active Substance: METHYLPHENIDATE
     Indication: OPPOSITIONAL DEFIANT DISORDER
     Dosage: 36 MG, UNK
  2. SERTRALINE HCL [Suspect]
     Active Substance: SERTRALINE HYDROCHLORIDE
     Indication: ANXIETY DISORDER
     Dosage: 75 MG, UNK

REACTIONS (3)
  - Seizure [Recovered/Resolved]
  - Electroencephalogram abnormal [Not Recovered/Not Resolved]
  - Drug interaction [Unknown]
